FAERS Safety Report 20461631 (Version 1)
Quarter: 2022Q1

REPORT INFORMATION
  Report Type: Spontaneous
  Country: US (occurrence: US)
  Receive Date: 20220211
  Receipt Date: 20220211
  Transmission Date: 20220423
  Serious: Yes (Other)
  Sender: FDA-Public Use
  Company Number: US-MYLANLABS-2022M1011638

PATIENT
  Sex: Female

DRUGS (40)
  1. METHOTREXATE [Suspect]
     Active Substance: METHOTREXATE
     Indication: Pemphigus
     Dosage: 10 MILLIGRAM, QW,RECEIVED DURING LOADING DOSE OF RITUXIMAB
     Route: 065
     Dates: start: 201606
  2. METHOTREXATE [Suspect]
     Active Substance: METHOTREXATE
     Dosage: 15 MILLIGRAM, QW, RECEIVED ON RELAPSE OF PEMPHIGUS VULGARIS
     Route: 065
     Dates: start: 2017
  3. DIPHENHYDRAMINE [Suspect]
     Active Substance: DIPHENHYDRAMINE
     Indication: Anaphylaxis prophylaxis
     Dosage: 25 MILLIGRAM, RECEIVED DURING LOADING DOSE OF RITUXIMAB
     Route: 042
     Dates: start: 201606
  4. DIPHENHYDRAMINE [Suspect]
     Active Substance: DIPHENHYDRAMINE
     Indication: Premedication
     Dosage: 50 MILLIGRAM, RECEIVED DURING RELAPSE OF PEMPHIGUS VULGARIS
     Route: 042
     Dates: start: 2017
  5. DIPHENHYDRAMINE [Suspect]
     Active Substance: DIPHENHYDRAMINE
     Dosage: 50 MILLIGRAM,RECEIVED DURING RITUXIMAB DESENSITISATION
     Route: 042
     Dates: start: 2018
  6. DIPHENHYDRAMINE [Suspect]
     Active Substance: DIPHENHYDRAMINE
     Dosage: 50 MILLIGRAM,RECEIVED DURING OCRELIZUMAB THERAPY
     Route: 042
     Dates: start: 2018
  7. ACETAMINOPHEN [Suspect]
     Active Substance: ACETAMINOPHEN
     Indication: Anaphylaxis prophylaxis
     Dosage: 650 MILLIGRAM, RECEIVED ON RELAPSE OF PEMPHIGUS VULGARIS
     Route: 048
     Dates: start: 2017
  8. ACETAMINOPHEN [Suspect]
     Active Substance: ACETAMINOPHEN
     Indication: Premedication
     Dosage: 650 MILLIGRAM,RECEIVED DURING OCRELIZUMAB THERAPY
     Route: 048
     Dates: start: 2018
  9. MONTELUKAST [Suspect]
     Active Substance: MONTELUKAST SODIUM
     Indication: Anaphylaxis prophylaxis
     Dosage: 10 MILLIGRAM, ONCE; RECEIVED ONCE DURING RITUXIMAB DESENSITISATION
     Route: 048
     Dates: start: 2018
  10. MONTELUKAST [Suspect]
     Active Substance: MONTELUKAST SODIUM
     Indication: Premedication
  11. FAMOTIDINE [Suspect]
     Active Substance: FAMOTIDINE
     Indication: Anaphylaxis prophylaxis
     Dosage: 20 MILLIGRAM, ONCE; RECEIVED ONCE DURING RITUXIMAB DESENSITISATION
     Route: 042
     Dates: start: 2018
  12. FAMOTIDINE [Suspect]
     Active Substance: FAMOTIDINE
     Indication: Premedication
  13. METHYLPREDNISOLONE [Suspect]
     Active Substance: METHYLPREDNISOLONE
     Indication: Pemphigus
     Dosage: 100 MILLIGRAM, RECEIVED DURING LOADING DOSE OF RITUXIMAB
     Route: 042
     Dates: start: 201606
  14. METHYLPREDNISOLONE [Suspect]
     Active Substance: METHYLPREDNISOLONE
     Indication: Anaphylaxis prophylaxis
     Dosage: 125 MILLIGRAM, RECEIVED DURING RELAPSE OF PEMPHIGUS VULGARIS
     Route: 042
     Dates: start: 2017
  15. METHYLPREDNISOLONE [Suspect]
     Active Substance: METHYLPREDNISOLONE
     Indication: Premedication
     Dosage: 50 MILLIGRAM,RECEIVED DURING RITUXIMAB DESENSITISATION
     Route: 042
     Dates: start: 2018
  16. METHYLPREDNISOLONE [Suspect]
     Active Substance: METHYLPREDNISOLONE
     Dosage: 125 MILLIGRAM,RECEIVED DURING OCRELIZUMAB THERAPY
     Route: 042
     Dates: start: 2018
  17. METHYLPREDNISOLONE [Suspect]
     Active Substance: METHYLPREDNISOLONE
     Indication: Pemphigus
     Dosage: 20 MILLIGRAM, QD
     Route: 065
  18. METHYLPREDNISOLONE [Suspect]
     Active Substance: METHYLPREDNISOLONE
     Indication: Anaphylaxis prophylaxis
  19. METHYLPREDNISOLONE [Suspect]
     Active Substance: METHYLPREDNISOLONE
     Indication: Premedication
  20. ASPIRIN [Suspect]
     Active Substance: ASPIRIN
     Indication: Anaphylaxis prophylaxis
     Dosage: 325 MILLIGRAM, ONCE; RECEIVED ONCE DURING RITUXIMAB DESENSITISATION
     Route: 048
     Dates: start: 2018
  21. ASPIRIN [Suspect]
     Active Substance: ASPIRIN
     Indication: Premedication
  22. AZATHIOPRINE [Suspect]
     Active Substance: AZATHIOPRINE
     Indication: Pemphigus
     Dosage: 150 MILLIGRAM, QD
     Route: 065
  23. HUMAN IMMUNOGLOBULIN G [Suspect]
     Active Substance: HUMAN IMMUNOGLOBULIN G
     Indication: Pemphigus
     Dosage: 180 MILLIGRAM, MONTHLY
     Route: 042
  24. RITUXIMAB [Concomitant]
     Active Substance: RITUXIMAB
     Indication: Pemphigus
     Dosage: 1000 MILLIGRAM, INTRAVENOUS INFUSION, RECEIVED LOADING DOSE ON DAY 0
     Route: 042
     Dates: start: 201606
  25. RITUXIMAB [Concomitant]
     Active Substance: RITUXIMAB
     Dosage: 1000 MILLIGRAM, INTRAVENOUS INFUSION,  RECEIVED LOADING DOSE ON DAY 15
     Route: 042
     Dates: start: 2016
  26. RITUXIMAB [Concomitant]
     Active Substance: RITUXIMAB
     Dosage: 1000 MILLIGRAM, INTRAVENOUS INFUSION ,RECEIVED ONCE ON RELAPSE OF PEMPHIGUS VULGARIS
     Route: 042
     Dates: start: 2017
  27. RITUXIMAB [Concomitant]
     Active Substance: RITUXIMAB
     Dosage: 1000 MILLIGRAM, INTRAVENOUS INFUSION,  RECEIVED ONCE DURING DESENSITISATION
     Route: 042
     Dates: start: 2018
  28. OCREVUS [Concomitant]
     Active Substance: OCRELIZUMAB
     Indication: Pemphigus
     Dosage: 300 MILLIGRAM, INTRAVENOUS INFUSION, RECEIVED AS LOADING DOSE ON DAY 0
     Route: 042
     Dates: start: 2018
  29. OCREVUS [Concomitant]
     Active Substance: OCRELIZUMAB
     Dosage: 300 MILLIGRAM, INTRAVENOUS INFUSION, RECEIVED AS LOADING DOSE ON DAY 15
     Route: 042
     Dates: start: 2018
  30. OCREVUS [Concomitant]
     Active Substance: OCRELIZUMAB
     Dosage: 300 MILLIGRAM, INTRAVENOUS INFUSION, RECEIVED AS LOADING DOSE AT 6 MONTHS
     Route: 042
     Dates: start: 2019
  31. OCREVUS [Concomitant]
     Active Substance: OCRELIZUMAB
     Dosage: 600 MILLIGRAM, INTRAVENOUS INFUSION, RECEIVED AS MAINTENANCE DOSE AT 12, 18 AND 24 MONTHS
     Route: 042
  32. PREDNISONE [Concomitant]
     Active Substance: PREDNISONE
     Indication: Pemphigus
     Dosage: 100 MILLIGRAM, QD; RECEIVED DURING LOADING DOSE OF RITUXIMAB
     Route: 065
     Dates: start: 201606
  33. PREDNISONE [Concomitant]
     Active Substance: PREDNISONE
     Dosage: 40 MILLIGRAM, QD, RECEIVED DURING LOADING DOSE OF RITUXIMAB
     Route: 065
     Dates: start: 2016
  34. PREDNISONE [Concomitant]
     Active Substance: PREDNISONE
     Dosage: 20 MILLIGRAM, QD, RECEIVED DURING RELAPSE OF PEMPHIGUS VULGARIS
     Route: 065
     Dates: start: 2017
  35. PREDNISONE [Concomitant]
     Active Substance: PREDNISONE
     Dosage: 20 MILLIGRAM, QD, RECEIVED ONCE DURING RITUXIMAB DESENSITISATION
     Route: 065
     Dates: start: 2018
  36. PREDNISONE [Concomitant]
     Active Substance: PREDNISONE
     Dosage: 20 MILLIGRAM, QD,RECEIVED DURING OCRELIZUMAB THERAPY
     Route: 065
     Dates: start: 2018
  37. PREDNISONE [Concomitant]
     Active Substance: PREDNISONE
     Dosage: 10 MILLIGRAM, QD, RECEIVED DURING OCRELIZUMAB THERAPY
     Route: 065
     Dates: start: 2019
  38. DAPSONE [Concomitant]
     Active Substance: DAPSONE
     Indication: Pemphigus
     Dosage: 25 MILLIGRAM, QD, RECEIVED DURING LOADING DOSE OF RITUXIMAB
     Route: 065
     Dates: start: 201606
  39. DAPSONE [Concomitant]
     Active Substance: DAPSONE
     Dosage: 75 MILLIGRAM, QD, RECEIVED ON RELAPSE OF PEMPHIGUS VULGARIS
     Route: 065
     Dates: start: 2017
  40. CYCLOPHOSPHAMIDE [Concomitant]
     Active Substance: CYCLOPHOSPHAMIDE
     Indication: Pemphigus
     Dosage: 150 MILLIGRAM, QD
     Route: 065
     Dates: start: 2018

REACTIONS (3)
  - Drug ineffective [Unknown]
  - Fatigue [Unknown]
  - Off label use [Unknown]
